FAERS Safety Report 6804051-9 (Version None)
Quarter: 2010Q2

REPORT INFORMATION
  Report Type: 
  Country: None (occurrence: None)
  Receive Date: 20100628
  Receipt Date: 20060824
  Transmission Date: 20101027
  Serious: Yes (Death, Hospitalization)
  Sender: FDA-Public Use
  Company Number: US-PFIZER INC-2006104163

PATIENT
  Sex: Male
  Weight: 72.57 kg

DRUGS (5)
  1. SUTENT [Suspect]
     Indication: RENAL CELL CARCINOMA
     Route: 048
     Dates: start: 20060728
  2. INSULIN [Concomitant]
     Route: 065
  3. LASIX [Concomitant]
     Route: 065
  4. MORPHINE [Concomitant]
     Route: 065
  5. ANTIBIOTICS [Concomitant]
     Route: 065

REACTIONS (2)
  - DISEASE PROGRESSION [None]
  - RENAL CELL CARCINOMA [None]
